FAERS Safety Report 14813581 (Version 1)
Quarter: 2018Q2

REPORT INFORMATION
  Report Type: Report from Study
  Country: US (occurrence: US)
  Receive Date: 20180426
  Receipt Date: 20180426
  Transmission Date: 20180711
  Serious: Yes (Hospitalization, Other)
  Sender: FDA-Public Use
  Company Number: US-BRISTOL-MYERS SQUIBB COMPANY-BMS-2018-036111

PATIENT
  Age: 38 Year
  Sex: Female
  Weight: 60.8 kg

DRUGS (2)
  1. NIVOLUMAB [Suspect]
     Active Substance: NIVOLUMAB
     Indication: NEUROENDOCRINE CARCINOMA
     Dosage: 720 MG, UNK
     Route: 042
     Dates: start: 20171220, end: 20180118
  2. IPILIMUMAB [Suspect]
     Active Substance: IPILIMUMAB
     Indication: NEUROENDOCRINE CARCINOMA
     Dosage: 61 MG, UNK
     Route: 042
     Dates: start: 20171220, end: 20180118

REACTIONS (3)
  - Psychotic disorder [Recovered/Resolved with Sequelae]
  - Pneumothorax [Recovered/Resolved with Sequelae]
  - Encephalopathy [Recovered/Resolved with Sequelae]

NARRATIVE: CASE EVENT DATE: 20180201
